FAERS Safety Report 17350250 (Version 1)
Quarter: 2020Q1

REPORT INFORMATION
  Report Type: Spontaneous
  Country: US (occurrence: US)
  Receive Date: 20200130
  Receipt Date: 20200130
  Transmission Date: 20200409
  Serious: Yes (Death)
  Sender: FDA-Public Use
  Company Number: US-JNJFOC-20200137492

PATIENT
  Age: 18 Year
  Sex: Female

DRUGS (1)
  1. DURAGESIC [Suspect]
     Active Substance: FENTANYL
     Indication: COMPLETED SUICIDE
     Route: 048

REACTIONS (2)
  - Toxicity to various agents [Fatal]
  - Intentional product use issue [Fatal]
